FAERS Safety Report 6437253-4 (Version None)
Quarter: 2009Q4

REPORT INFORMATION
  Report Type: 
  Country: None (occurrence: None)
  Receive Date: 20091112
  Receipt Date: 20091109
  Transmission Date: 20100525
  Serious: Yes (Death)
  Sender: FDA-Public Use
  Company Number: BE-SANOFI-AVENTIS-2009SA000264

PATIENT
  Age: 69 Year
  Sex: Female
  Weight: 92 kg

DRUGS (5)
  1. DOCETAXEL [Suspect]
     Indication: BREAST CANCER
     Dates: start: 20091028, end: 20091028
  2. XELODA [Suspect]
     Indication: BREAST CANCER
     Route: 048
     Dates: start: 20091028
  3. ATACAND [Concomitant]
  4. TRAZOLAN [Concomitant]
  5. ELTHYROXINE 100 [Concomitant]

REACTIONS (1)
  - DEATH [None]
